FAERS Safety Report 11615871 (Version 2)
Quarter: 2015Q4

REPORT INFORMATION
  Report Type: Report from Study
  Country: KR (occurrence: KR)
  Receive Date: 20151009
  Receipt Date: 20151020
  Transmission Date: 20160304
  Serious: Yes (Other)
  Sender: FDA-Public Use
  Company Number: KR-GLAXOSMITHKLINE-KR2015142832

PATIENT
  Age: 38 Year
  Sex: Female
  Weight: 55 kg

DRUGS (1)
  1. BELIMUMAB [Suspect]
     Active Substance: BELIMUMAB
     Indication: LUPUS NEPHRITIS
     Dosage: 10 MG/KG, CYC
     Route: 042
     Dates: start: 20150409

REACTIONS (1)
  - Papillary thyroid cancer [Not Recovered/Not Resolved]

NARRATIVE: CASE EVENT DATE: 20150915
